FAERS Safety Report 6236631-6 (Version None)
Quarter: 2009Q2

REPORT INFORMATION
  Report Type: 
  Country: None (occurrence: None)
  Receive Date: 20090619
  Receipt Date: 20080828
  Transmission Date: 20091009
  Serious: No
  Sender: FDA-Public Use
  Company Number: US-ASTRAZENECA-2008UW17794

PATIENT
  Age: 49 Year
  Sex: Female
  Weight: 63 kg

DRUGS (7)
  1. ATACAND [Suspect]
     Indication: DYSLIPIDAEMIA
     Route: 048
  2. LANTUS [Concomitant]
  3. PLAVIX [Concomitant]
  4. LYRICA [Concomitant]
  5. CYMBALTA [Concomitant]
  6. PROTONIX [Concomitant]
  7. METFORMIN HCL [Concomitant]

REACTIONS (1)
  - MIGRAINE [None]
